FAERS Safety Report 10527590 (Version 1)
Quarter: 2014Q4

REPORT INFORMATION
  Report Type: Spontaneous
  Country: FR (occurrence: FR)
  Receive Date: 20141020
  Receipt Date: 20141020
  Transmission Date: 20150528
  Serious: Yes (Hospitalization)
  Sender: FDA-Public Use
  Company Number: FR-009507513-1410FRA007058

PATIENT
  Age: 61 Year
  Sex: Female

DRUGS (6)
  1. ZYVOXID [Concomitant]
     Active Substance: LINEZOLID
     Dosage: 2MG/ML
     Route: 051
  2. AMBISOME [Concomitant]
     Active Substance: AMPHOTERICIN B
     Dosage: 50MG
     Route: 051
  3. CIPROFLOXACIN. [Concomitant]
     Active Substance: CIPROFLOXACIN
     Dosage: 400 MG/200 ML
     Route: 051
  4. TIENAM IV 250MG/250MG, POUDRE POUR PERFUSION [Concomitant]
     Active Substance: CILASTATIN SODIUM\IMIPENEM
     Dosage: UNK
  5. AMIKACINE MYLAN [Concomitant]
     Active Substance: AMIKACIN
     Dosage: 1G
     Route: 051
  6. CANCIDAS [Suspect]
     Active Substance: CASPOFUNGIN ACETATE
     Dosage: 70 MG, QD
     Route: 042
     Dates: start: 201409, end: 20140925

REACTIONS (6)
  - Rash maculo-papular [Recovering/Resolving]
  - Eosinophilia [Recovering/Resolving]
  - Acute generalised exanthematous pustulosis [Recovering/Resolving]
  - Skin exfoliation [Recovering/Resolving]
  - Blister [Recovering/Resolving]
  - Oedema peripheral [Recovering/Resolving]

NARRATIVE: CASE EVENT DATE: 20140923
